FAERS Safety Report 12369484 (Version 1)
Quarter: 2016Q2

REPORT INFORMATION
  Report Type: Spontaneous
  Country: US (occurrence: None)
  Receive Date: 20160513
  Receipt Date: 20160513
  Transmission Date: 20160815
  Serious: No
  Sender: FDA-Public Use
  Company Number: None

PATIENT
  Sex: Male

DRUGS (4)
  1. ACARBOSE. [Suspect]
     Active Substance: ACARBOSE
  2. TOUJEO [Suspect]
     Active Substance: INSULIN GLARGINE
  3. METFORMIN [Suspect]
     Active Substance: METFORMIN HYDROCHLORIDE
  4. JANUVIA [Suspect]
     Active Substance: SITAGLIPTIN PHOSPHATE

REACTIONS (2)
  - Glycosylated haemoglobin increased [None]
  - Wrong technique in product usage process [None]
